FAERS Safety Report 8154457-3 (Version None)
Quarter: 2012Q1

REPORT INFORMATION
  Report Type: 
  Country: None (occurrence: None)
  Receive Date: 20120221
  Receipt Date: 20120214
  Transmission Date: 20120608
  Serious: No
  Sender: FDA-Public Use
  Company Number: PR-BAYER-2012-014801

PATIENT
  Age: 60 Year
  Sex: Female

DRUGS (1)
  1. GADAVIST [Suspect]
     Route: 042

REACTIONS (3)
  - UNEVALUABLE EVENT [None]
  - RHINORRHOEA [None]
  - PRURITUS [None]
